FAERS Safety Report 8468684 (Version 3)
Quarter: 2013Q1

REPORT INFORMATION
  Report Type: Spontaneous
  Country: DK (occurrence: JP)
  Receive Date: 20120320
  Receipt Date: 20130225
  Transmission Date: 20140127
  Serious: No
  Sender: FDA-Public Use
  Company Number: JP-FRI-1000029186

PATIENT
  Age: 33 Year
  Sex: Male
  Weight: 76 kg

DRUGS (4)
  1. LEXAPRO [Suspect]
     Indication: DEPRESSION
     Dosage: 20 MG
     Route: 048
     Dates: start: 20111210
  2. MYSLEE [Concomitant]
     Dosage: 10 MG
     Route: 048
  3. RIZE [Concomitant]
     Dosage: 10 MG
     Route: 048
  4. GOODMIN [Concomitant]
     Dosage: 0.25 MG
     Route: 048

REACTIONS (1)
  - Blood creatine phosphokinase increased [Recovered/Resolved]
